FAERS Safety Report 14248322 (Version 1)
Quarter: 2017Q4

REPORT INFORMATION
  Report Type: Spontaneous
  Country: CA (occurrence: CA)
  Receive Date: 20171202
  Receipt Date: 20171202
  Transmission Date: 20180321
  Serious: Yes (Hospitalization)
  Sender: FDA-Public Use
  Company Number: None

PATIENT
  Age: 38 Year
  Sex: Female
  Weight: 54.9 kg

DRUGS (1)
  1. BETAMETHASONE VALTRATE [Suspect]
     Active Substance: BETAMETHASONE VALERATE
     Indication: RASH
     Dosage: ?          QUANTITY:60 GRAMS;?
     Route: 061

REACTIONS (8)
  - Skin burning sensation [None]
  - Skin exfoliation [None]
  - Skin infection [None]
  - Erythema [None]
  - Bacterial test positive [None]
  - Skin atrophy [None]
  - Viral infection [None]
  - Pruritus [None]

NARRATIVE: CASE EVENT DATE: 20170731
